FAERS Safety Report 18944266 (Version 5)
Quarter: 2021Q2

REPORT INFORMATION
  Report Type: Spontaneous
  Country: US (occurrence: US)
  Receive Date: 20210226
  Receipt Date: 20210408
  Transmission Date: 20210717
  Serious: No
  Sender: FDA-Public Use
  Company Number: US-GLAXOSMITHKLINE-USCH2021009173

PATIENT
  Sex: Female

DRUGS (1)
  1. ALLI [Suspect]
     Active Substance: ORLISTAT
     Indication: PRODUCT USED FOR UNKNOWN INDICATION
     Dosage: UNK

REACTIONS (7)
  - Contraindicated product administered [Unknown]
  - Suspected counterfeit product [Unknown]
  - Product complaint [Unknown]
  - Constipation [Unknown]
  - Malaise [Unknown]
  - Abdominal pain upper [Unknown]
  - Illness [Unknown]
